FAERS Safety Report 8158091-0 (Version None)
Quarter: 2012Q1

REPORT INFORMATION
  Report Type: 
  Country: None (occurrence: None)
  Receive Date: 20120222
  Receipt Date: 20120220
  Transmission Date: 20120608
  Serious: Yes (Death, Hospitalization)
  Sender: FDA-Public Use
  Company Number: PHHY2012ES014723

PATIENT
  Age: 84 Year
  Sex: Female

DRUGS (5)
  1. FORTECORTIN [Concomitant]
     Indication: METASTASES TO BONE
     Dosage: 4 MG, QD
  2. ALLOPURINOL [Concomitant]
  3. OMEPRAZOLE [Concomitant]
  4. VALSARTAN/HYDROCHLOORTHIAZIDE [Concomitant]
  5. AFINITOR [Suspect]
     Indication: METASTATIC RENAL CELL CARCINOMA
     Dosage: 10 MG, QD
     Route: 048
     Dates: start: 20120126

REACTIONS (4)
  - NEUTROPENIA [None]
  - RENAL FAILURE [None]
  - DEHYDRATION [None]
  - LEUKOPENIA [None]
